FAERS Safety Report 8419704-9 (Version None)
Quarter: 2012Q2

REPORT INFORMATION
  Report Type: 
  Country: None (occurrence: None)
  Receive Date: 20120607
  Receipt Date: 20120525
  Transmission Date: 20120825
  Serious: Yes (Disabling)
  Sender: FDA-Public Use
  Company Number: SK-ACTELION-A-CH2012-64835

PATIENT
  Sex: Male
  Weight: 95 kg

DRUGS (10)
  1. ZAVESCA [Suspect]
     Dosage: 400 MG, QD
     Route: 048
     Dates: start: 20120328
  2. OLANZAPINE [Concomitant]
     Dosage: UNK
     Dates: start: 20100815
  3. PIRIDOXINA [Concomitant]
  4. BETAHISTINE [Concomitant]
  5. ZAVESCA [Suspect]
     Dosage: 200 MG, TID
     Route: 048
     Dates: start: 20100301, end: 20100815
  6. VITAMIN E [Concomitant]
  7. ZAVESCA [Suspect]
     Dosage: UNK MG, TID
     Route: 048
     Dates: start: 20080110
  8. ZAVESCA [Suspect]
     Dosage: 200 MG, TID
     Route: 048
     Dates: start: 20120209, end: 20120327
  9. PIRACETAM [Concomitant]
  10. ZAVESCA [Suspect]
     Indication: NIEMANN-PICK DISEASE
     Dosage: 100 MG, TID
     Route: 048
     Dates: start: 20101201, end: 20120208

REACTIONS (6)
  - ABNORMAL BEHAVIOUR [None]
  - DEPRESSED MOOD [None]
  - APATHY [None]
  - MOOD ALTERED [None]
  - GAIT DISTURBANCE [None]
  - SOMNOLENCE [None]
